FAERS Safety Report 16079587 (Version 5)
Quarter: 2019Q4

REPORT INFORMATION
  Report Type: Report from Study
  Country: None (occurrence: US)
  Receive Date: 20190315
  Receipt Date: 20191229
  Transmission Date: 20200122
  Serious: Yes (Other)
  Sender: FDA-Public Use
  Company Number: US-ABBVIE-18K-163-2505623-00

PATIENT
  Sex: Female

DRUGS (1)
  1. HUMIRA [Suspect]
     Active Substance: ADALIMUMAB
     Indication: RHEUMATOID ARTHRITIS
     Route: 058

REACTIONS (52)
  - Pharyngeal disorder [Recovered/Resolved]
  - Foot deformity [Unknown]
  - Inflammation [Unknown]
  - Stress [Unknown]
  - Injection site pain [Recovering/Resolving]
  - Musculoskeletal pain [Unknown]
  - Dyspnoea [Unknown]
  - Neuropathy peripheral [Unknown]
  - Respiratory disorder [Unknown]
  - Cataract [Unknown]
  - Hiatus hernia [Recovered/Resolved]
  - Fatigue [Unknown]
  - Oesophagitis [Recovered/Resolved]
  - Knee arthroplasty [Unknown]
  - Osteoarthritis [Unknown]
  - Malaise [Unknown]
  - Joint swelling [Unknown]
  - Fibromyalgia [Unknown]
  - Choking [Unknown]
  - Drug ineffective [Unknown]
  - Hypertension [Unknown]
  - Headache [Unknown]
  - Myocardial infarction [Unknown]
  - Pollakiuria [Unknown]
  - Head injury [Unknown]
  - Gait disturbance [Unknown]
  - Dysstasia [Unknown]
  - Depression [Unknown]
  - Pain in extremity [Unknown]
  - Vomiting [Unknown]
  - Weight abnormal [Not Recovered/Not Resolved]
  - Catheterisation cardiac [Unknown]
  - Back pain [Unknown]
  - Fibrocystic breast disease [Unknown]
  - Sleep apnoea syndrome [Unknown]
  - Bursitis [Unknown]
  - Poor quality sleep [Unknown]
  - Dysphagia [Unknown]
  - Pain [Unknown]
  - Chest pain [Unknown]
  - Joint effusion [Unknown]
  - Arthropathy [Recovering/Resolving]
  - Neck pain [Unknown]
  - Coronary artery occlusion [Unknown]
  - Hand deformity [Unknown]
  - Musculoskeletal disorder [Not Recovered/Not Resolved]
  - Cough [Unknown]
  - Insomnia [Unknown]
  - Concussion [Unknown]
  - Tendon disorder [Unknown]
  - Pain [Recovering/Resolving]
  - Arthralgia [Unknown]

NARRATIVE: CASE EVENT DATE: 2015
